FAERS Safety Report 24739336 (Version 1)
Quarter: 2024Q4

REPORT INFORMATION
  Report Type: Spontaneous
  Country: TR (occurrence: TR)
  Receive Date: 20241216
  Receipt Date: 20241216
  Transmission Date: 20250114
  Serious: Yes (Hospitalization)
  Sender: BEXIMCO PHARMACEUTICALS
  Company Number: TR-BEXIMCO-2024BEX00051

PATIENT
  Age: 47 Year
  Sex: Female

DRUGS (1)
  1. BACLOFEN [Suspect]
     Active Substance: BACLOFEN
     Indication: Cerebral palsy
     Dosage: 10 MILLIGRAM PER GRAM, 1X/DAY

REACTIONS (1)
  - Mania [Recovered/Resolved]
